FAERS Safety Report 7055517-0 (Version None)
Quarter: 2010Q4

REPORT INFORMATION
  Report Type: 
  Country: None (occurrence: None)
  Receive Date: 20101021
  Receipt Date: 20101016
  Transmission Date: 20110411
  Serious: No
  Sender: FDA-Public Use
  Company Number: US-PFIZER INC-2010132096

PATIENT
  Sex: Female
  Weight: 101.13 kg

DRUGS (3)
  1. CHANTIX [Suspect]
     Indication: SMOKING CESSATION THERAPY
     Dosage: 0.5 MG, 1X/DAY
     Route: 048
     Dates: start: 20101015
  2. MUCINEX [Concomitant]
     Indication: COUGH
     Dosage: UNK
     Route: 048
  3. PALIPERIDONE [Concomitant]
     Dosage: UNK

REACTIONS (1)
  - HEADACHE [None]
